FAERS Safety Report 10250513 (Version 1)
Quarter: 2014Q2

REPORT INFORMATION
  Report Type: Spontaneous
  Country: US (occurrence: US)
  Receive Date: 20140620
  Receipt Date: 20140620
  Transmission Date: 20141212
  Serious: Yes (Other)
  Sender: FDA-Public Use
  Company Number: US-GLAXOSMITHKLINE-A1036832A

PATIENT
  Age: 71 Year
  Sex: Female

DRUGS (18)
  1. ADVAIR HFA [Suspect]
     Indication: CHRONIC OBSTRUCTIVE PULMONARY DISEASE
     Dosage: 2PUFF TWICE PER DAY
     Route: 055
  2. DIOVAN [Concomitant]
  3. FAMOTIDINE [Concomitant]
  4. LEVOTHYROXINE [Concomitant]
  5. BABY ASPIRIN [Concomitant]
  6. ATIVAN [Concomitant]
  7. OXYGEN [Concomitant]
  8. VITAMINS [Concomitant]
  9. DIOVAN HCTZ [Concomitant]
  10. RED YEAST RICE [Concomitant]
  11. FISH OIL CAPSULES [Concomitant]
  12. MAGNESIUM [Concomitant]
  13. IRON [Concomitant]
  14. CENTRUM SILVER [Concomitant]
  15. COQ-10 [Concomitant]
  16. CALCIUM + VITAMIN D [Concomitant]
  17. BIOTIN [Concomitant]
  18. ADVAIR HFA [Suspect]
     Indication: CHRONIC OBSTRUCTIVE PULMONARY DISEASE
     Dosage: 1PUFF TWICE PER DAY
     Route: 055

REACTIONS (3)
  - Dysphonia [Not Recovered/Not Resolved]
  - Breast cancer in situ [Unknown]
  - Breast lump removal [Unknown]
